FAERS Safety Report 23106671 (Version 1)
Quarter: 2023Q4

REPORT INFORMATION
  Report Type: Spontaneous
  Country: AU (occurrence: AU)
  Receive Date: 20231026
  Receipt Date: 20231026
  Transmission Date: 20240110
  Serious: Yes (Other)
  Sender: FDA-Public Use
  Company Number: None

PATIENT
  Age: 72 Year
  Sex: Female

DRUGS (14)
  1. BASILIXIMAB [Suspect]
     Active Substance: BASILIXIMAB
     Indication: Immunosuppressant drug therapy
     Dosage: UNK
     Route: 065
  2. MYCOPHENOLATE MOFETIL [Suspect]
     Active Substance: MYCOPHENOLATE MOFETIL
     Indication: Immunosuppressant drug therapy
     Dosage: UNK
     Route: 065
  3. TACROLIMUS [Suspect]
     Active Substance: TACROLIMUS
     Indication: Immunosuppressant drug therapy
     Dosage: UNK
     Route: 065
  4. VORICONAZOLE [Suspect]
     Active Substance: VORICONAZOLE
     Indication: Mycotic endophthalmitis
     Dosage: UNK UNK, BIW
     Route: 031
  5. VORICONAZOLE [Suspect]
     Active Substance: VORICONAZOLE
     Indication: Aspergillus infection
  6. PREDNISOLONE [Suspect]
     Active Substance: PREDNISOLONE
     Indication: Transplant rejection
     Dosage: 10 MG, QD
     Route: 048
  7. PREDNISOLONE [Suspect]
     Active Substance: PREDNISOLONE
     Indication: Immunosuppressant drug therapy
  8. METHYLPREDNISOLONE [Suspect]
     Active Substance: METHYLPREDNISOLONE
     Indication: Transplant rejection
     Dosage: 500 MG, QD
     Route: 042
  9. METHYLPREDNISOLONE [Suspect]
     Active Substance: METHYLPREDNISOLONE
     Indication: Immunosuppressant drug therapy
  10. ANIDULAFUNGIN [Concomitant]
     Active Substance: ANIDULAFUNGIN
     Indication: Endophthalmitis
     Dosage: 100 MG, QD
     Route: 042
  11. ANIDULAFUNGIN [Concomitant]
     Active Substance: ANIDULAFUNGIN
     Indication: Aspergillus infection
  12. MICAFUNGIN [Concomitant]
     Active Substance: MICAFUNGIN SODIUM
     Indication: Disseminated aspergillosis
     Dosage: UNK
     Route: 042
  13. MICAFUNGIN [Concomitant]
     Active Substance: MICAFUNGIN SODIUM
     Indication: Antibiotic therapy
  14. TERBINAFINE [Concomitant]
     Active Substance: TERBINAFINE
     Indication: Disseminated aspergillosis
     Dosage: 500 MG, QD
     Route: 048

REACTIONS (5)
  - Disseminated aspergillosis [Recovered/Resolved]
  - Fluorosis [Recovered/Resolved]
  - Mycotic endophthalmitis [Recovered/Resolved]
  - Periostitis [Recovered/Resolved]
  - Off label use [Unknown]
